FAERS Safety Report 18782391 (Version 1)
Quarter: 2021Q1

REPORT INFORMATION
  Report Type: Spontaneous
  Country: US (occurrence: US)
  Receive Date: 20210125
  Receipt Date: 20210125
  Transmission Date: 20210419
  Serious: Yes (Life-Threatening, Hospitalization)
  Sender: FDA-Public Use
  Company Number: US-TEVA-2021-US-1869935

PATIENT
  Age: 35 Year
  Sex: Female

DRUGS (25)
  1. DOBUTAMINE [Suspect]
     Active Substance: DOBUTAMINE HYDROCHLORIDE
     Dosage: 7 MICROG/KG/MINUTE
     Route: 065
  2. AMIODARONE [Interacting]
     Active Substance: AMIODARONE
     Dosage: 1 MG/MINUTE FOR 6 HOURS
     Route: 065
  3. LIDOCAINE. [Interacting]
     Active Substance: LIDOCAINE
     Dosage: 200 MG
     Route: 042
  4. FENTANYL. [Interacting]
     Active Substance: FENTANYL
     Indication: GENERAL ANAESTHESIA
     Dosage: 200 MG
     Route: 065
  5. EPINEPHRINE. [Suspect]
     Active Substance: EPINEPHRINE
     Indication: VENTRICULAR TACHYCARDIA
     Dosage: 0.04 MICROG/KG/MINUTE
     Route: 065
  6. PROCAINAMIDE HYDROCHLORIDE. [Suspect]
     Active Substance: PROCAINAMIDE HYDROCHLORIDE
     Indication: VENTRICULAR TACHYCARDIA
     Dosage: 1 MG/MIN
     Route: 065
  7. CEFEPIME [Concomitant]
     Active Substance: CEFEPIME HYDROCHLORIDE
     Indication: PRODUCT USED FOR UNKNOWN INDICATION
     Route: 065
  8. EPINEPHRINE. [Suspect]
     Active Substance: EPINEPHRINE
     Dosage: 0.06 MICROG/KG/MINUTE
     Route: 065
  9. DOBUTAMINE [Suspect]
     Active Substance: DOBUTAMINE HYDROCHLORIDE
     Indication: VENTRICULAR TACHYCARDIA
     Dosage: 6 MICROG/KG/MIN
     Route: 065
  10. LIDOCAINE. [Interacting]
     Active Substance: LIDOCAINE
     Dosage: 100 MG
     Route: 042
  11. KETAMINE [Interacting]
     Active Substance: KETAMINE
     Dosage: 10 MG/HOUR
     Route: 065
  12. LIDOCAINE. [Interacting]
     Active Substance: LIDOCAINE
     Indication: GENERAL ANAESTHESIA
     Dosage: 3 MG/MINUTE
     Route: 041
  13. ROCURONIUM [Concomitant]
     Active Substance: ROCURONIUM BROMIDE
     Indication: GENERAL ANAESTHESIA
     Dosage: 50 MG
     Route: 065
  14. PHENYLEPHRINE [Suspect]
     Active Substance: PHENYLEPHRINE HYDROCHLORIDE
     Indication: VENTRICULAR TACHYCARDIA
     Dosage: 1.5 MICROG/KG/MINUTE
     Route: 065
  15. VASOPRESSIN. [Suspect]
     Active Substance: VASOPRESSIN
     Indication: VENTRICULAR TACHYCARDIA
     Dosage: 0.03 UNITS/MINUTE
     Route: 065
  16. LIDOCAINE. [Interacting]
     Active Substance: LIDOCAINE
     Dosage: 78 MG
     Route: 040
  17. EPOPROSTENOL. [Concomitant]
     Active Substance: EPOPROSTENOL
     Indication: VENTRICULAR TACHYCARDIA
     Dosage: 50 NG/KG
     Route: 065
  18. PROPOFOL. [Suspect]
     Active Substance: PROPOFOL
     Indication: GENERAL ANAESTHESIA
     Dosage: 50 MG
     Route: 065
  19. KETAMINE [Interacting]
     Active Substance: KETAMINE
     Indication: GENERAL ANAESTHESIA
     Dosage: 34 MILLIGRAM
     Route: 065
  20. AMIODARONE [Interacting]
     Active Substance: AMIODARONE
     Indication: VENTRICULAR TACHYCARDIA
     Dosage: 150MG
     Route: 065
  21. NOREPINEPHRINE. [Suspect]
     Active Substance: NOREPINEPHRINE
     Indication: VENTRICULAR TACHYCARDIA
     Dosage: 0.4 UG/KG
     Route: 065
  22. AMIODARONE [Interacting]
     Active Substance: AMIODARONE
     Dosage: 0.5 MG/MINUTE
     Route: 065
  23. LIDOCAINE. [Interacting]
     Active Substance: LIDOCAINE
     Indication: VENTRICULAR ARRHYTHMIA
     Dosage: 2 MG/MINUTE
     Route: 041
  24. LIDOCAINE. [Interacting]
     Active Substance: LIDOCAINE
     Dosage: 4 MG/MINUTE
     Route: 041
  25. DEXMEDETOMIDINE. [Concomitant]
     Active Substance: DEXMEDETOMIDINE
     Indication: VENTRICULAR TACHYCARDIA
     Dosage: 0.7 UG/KG/MIN
     Route: 065

REACTIONS (8)
  - Ventricular arrhythmia [Recovering/Resolving]
  - Respiratory acidosis [Recovered/Resolved]
  - Status epilepticus [Recovered/Resolved]
  - Drug interaction [Recovering/Resolving]
  - Hepatic function abnormal [Recovering/Resolving]
  - Local anaesthetic systemic toxicity [Recovering/Resolving]
  - Electrocardiogram QT prolonged [Unknown]
  - Torsade de pointes [Recovering/Resolving]
